FAERS Safety Report 9024355 (Version 1)
Quarter: 2013Q1

REPORT INFORMATION
  Report Type: Spontaneous
  Country: US (occurrence: US)
  Receive Date: 20130121
  Receipt Date: 20130121
  Transmission Date: 20140127
  Serious: Yes (Life-Threatening, Hospitalization)
  Sender: FDA-Public Use
  Company Number: US-BAYER-2013-005101

PATIENT
  Age: 45 Year
  Sex: Female
  Weight: 113 kg

DRUGS (3)
  1. YASMIN [Suspect]
  2. SYNTHROID [Concomitant]
     Dosage: 88 MCG, DAILY
     Dates: end: 20070803
  3. LEXAPRO [Concomitant]
     Dosage: 10 MG, DAILY
     Dates: end: 20070813

REACTIONS (2)
  - Pulmonary embolism [None]
  - Deep vein thrombosis [None]
